FAERS Safety Report 17484901 (Version 2)
Quarter: 2020Q2

REPORT INFORMATION
  Report Type: Report from Study
  Country: CA (occurrence: CA)
  Receive Date: 20200302
  Receipt Date: 20200416
  Transmission Date: 20200713
  Serious: Yes (Other)
  Sender: FDA-Public Use
  Company Number: CA-JNJFOC-20191225199

PATIENT
  Sex: Female
  Weight: 63.73 kg

DRUGS (1)
  1. SIMPONI [Suspect]
     Active Substance: GOLIMUMAB
     Indication: RHEUMATOID ARTHRITIS
     Dosage: STRENGTH WAS 50 MG
     Route: 058
     Dates: start: 20160426

REACTIONS (1)
  - Diverticulitis [Recovered/Resolved]
